FAERS Safety Report 18884450 (Version 4)
Quarter: 2021Q3

REPORT INFORMATION
  Report Type: Report from Study
  Country: BE (occurrence: BE)
  Receive Date: 20210211
  Receipt Date: 20210908
  Transmission Date: 20211014
  Serious: Yes (Other)
  Sender: FDA-Public Use
  Company Number: BE-BEH-2020126766

PATIENT
  Sex: Female
  Weight: 56 kg

DRUGS (3)
  1. HIZENTRA [Suspect]
     Active Substance: HUMAN IMMUNOGLOBULIN G
     Indication: IMMUNE THROMBOCYTOPENIA
  2. HIZENTRA [Suspect]
     Active Substance: HUMAN IMMUNOGLOBULIN G
     Indication: PRIMARY IMMUNODEFICIENCY SYNDROME
     Dosage: 8 GRAM (40 ML), QW
     Route: 058
     Dates: start: 202002
  3. ORENCIA [Concomitant]
     Active Substance: ABATACEPT
     Route: 065

REACTIONS (7)
  - Lung disorder [Unknown]
  - Off label use [Unknown]
  - COVID-19 [Recovered/Resolved]
  - Infusion site pain [Unknown]
  - Central nervous system lesion [Not Recovered/Not Resolved]
  - No adverse event [Unknown]
  - Headache [Not Recovered/Not Resolved]

NARRATIVE: CASE EVENT DATE: 2020
